FAERS Safety Report 5133984-7 (Version None)
Quarter: 2006Q4

REPORT INFORMATION
  Report Type: 
  Country: None (occurrence: None)
  Receive Date: 20061019
  Receipt Date: 20061004
  Transmission Date: 20070319
  Serious: Yes (Death, Hospitalization)
  Sender: FDA-Public Use
  Company Number: JP200610001075

PATIENT
  Age: 59 Year
  Sex: Female

DRUGS (1)
  1. GEMZAR [Suspect]
     Indication: PANCREATIC CARCINOMA
     Dosage: 1600 MG, OTHER, INTRAVENOUS
     Route: 042
     Dates: start: 20050101, end: 20050101

REACTIONS (5)
  - CEREBRAL INFARCTION [None]
  - COAGULOPATHY [None]
  - FIBRIN D DIMER INCREASED [None]
  - FIBRIN DEGRADATION PRODUCTS INCREASED [None]
  - TROUSSEAU'S SYNDROME [None]
